FAERS Safety Report 8911017 (Version 2)
Quarter: 2012Q4

REPORT INFORMATION
  Report Type: 
  Country: NO (occurrence: NO)
  Receive Date: 20121116
  Receipt Date: 20121125
  Transmission Date: 20130627
  Serious: Yes (Other)
  Sender: FDA-Public Use
  Company Number: NO-SANOFI-AVENTIS-2012SA081047

PATIENT
  Sex: Male

DRUGS (10)
  1. PLAQUENIL [Suspect]
     Indication: BORRELIA INFECTION
     Dosage: 200 mg X 2 for 6 weeks
     Route: 048
  2. METRONIDAZOLE [Suspect]
     Indication: BORRELIA INFECTION
     Route: 048
  3. METRONIDAZOLE [Suspect]
     Indication: BORRELIA INFECTION
     Route: 048
  4. AZITROMAX [Suspect]
     Indication: BORRELIA INFECTION
     Dosage: frequency:500 mg x 1 for 3 days with 2 days break for 2 weeks
     Route: 048
  5. AZITROMAX [Suspect]
     Indication: BORRELIA INFECTION
     Route: 048
  6. CLARITHROMYCIN [Suspect]
     Indication: BORRELIA INFECTION
     Dosage: frequency: 500 mg x 2 for 2 weeks
     Route: 048
  7. CLARITHROMYCIN [Suspect]
     Indication: BORRELIA INFECTION
     Route: 048
  8. AMOXICILLIN [Concomitant]
     Indication: BORRELIA INFECTION
  9. SELEXID [Concomitant]
     Indication: PYELITIS
  10. COPAXONE [Concomitant]
     Indication: MULTIPLE SCLEROSIS
     Route: 058

REACTIONS (2)
  - Clostridium difficile colitis [Unknown]
  - Off label use [Unknown]
